FAERS Safety Report 9102740 (Version 2)
Quarter: 2013Q2

REPORT INFORMATION
  Report Type: Spontaneous
  Country: US (occurrence: US)
  Receive Date: 20130219
  Receipt Date: 20130415
  Transmission Date: 20140414
  Serious: Yes (Other)
  Sender: FDA-Public Use
  Company Number: US-PFIZER INC-2013059829

PATIENT
  Sex: Male

DRUGS (1)
  1. NITROSTAT [Suspect]
     Indication: CHEST PAIN
     Dosage: UNK

REACTIONS (4)
  - Intentional drug misuse [Unknown]
  - Blood pressure decreased [Unknown]
  - Fall [Unknown]
  - Chest pain [Unknown]
